FAERS Safety Report 4608866-7 (Version None)
Quarter: 2005Q1

REPORT INFORMATION
  Report Type: 
  Country: None (occurrence: None)
  Receive Date: 20050311
  Receipt Date: 20050301
  Transmission Date: 20050727
  Serious: Yes (Other)
  Sender: FDA-Public Use
  Company Number: 2005038528

PATIENT
  Sex: Female

DRUGS (1)
  1. DEPO-PROVERA [Suspect]
     Indication: CONTRACEPTION
     Dosage: 150 MG (150 MG, EVERY 10-13 WEEKS, FIRST INJECTION), INTRAMUSCULAR
     Route: 030
     Dates: start: 20041210, end: 20041210

REACTIONS (8)
  - ENDOMETRIOSIS [None]
  - FEELING COLD [None]
  - FLUID RETENTION [None]
  - MOOD SWINGS [None]
  - PANIC ATTACK [None]
  - PSYCHOMOTOR HYPERACTIVITY [None]
  - SUICIDAL IDEATION [None]
  - WEIGHT INCREASED [None]
